FAERS Safety Report 25837213 (Version 2)
Quarter: 2025Q3

REPORT INFORMATION
  Report Type: Spontaneous
  Country: GB (occurrence: GB)
  Receive Date: 20250923
  Receipt Date: 20250925
  Transmission Date: 20251021
  Serious: Yes (Life-Threatening, Hospitalization, Other)
  Sender: PFIZER
  Company Number: GB-MLMSERVICE-20250912-PI643794-00270-1

PATIENT
  Age: 8 Decade
  Sex: Female

DRUGS (3)
  1. METHYLPREDNISOLONE [Suspect]
     Active Substance: METHYLPREDNISOLONE
     Indication: Hypereosinophilic syndrome
     Dosage: 250 MG, 1X/DAY GIVEN ON 21ST AND 22ND JANUARY
  2. FLUTICASONE FUROATE\VILANTEROL TRIFENATATE [Concomitant]
     Active Substance: FLUTICASONE FUROATE\VILANTEROL TRIFENATATE
     Indication: Asthma
     Route: 055
  3. PREDNISOLONE [Concomitant]
     Active Substance: PREDNISOLONE
     Indication: Hypereosinophilic syndrome
     Route: 048

REACTIONS (4)
  - Tumour lysis syndrome [Recovering/Resolving]
  - Acute kidney injury [Recovered/Resolved]
  - Anuria [Recovering/Resolving]
  - Off label use [Unknown]
